FAERS Safety Report 4305731-X (Version None)
Quarter: 2004Q1

REPORT INFORMATION
  Report Type: 
  Country: None (occurrence: None)
  Receive Date: 20040225
  Receipt Date: 20040114
  Transmission Date: 20041129
  Serious: Yes (Life-Threatening, Hospitalization, Disabling)
  Sender: FDA-Public Use
  Company Number: WAES 0309USA02134

PATIENT
  Age: 61 Year
  Sex: Female
  Weight: 76.2043 kg

DRUGS (14)
  1. EMEND [Suspect]
     Indication: PROPHYLAXIS OF NAUSEA AND VOMITING
     Dosage: SEE IMAGE
     Route: 048
     Dates: start: 20030902, end: 20030902
  2. EMEND [Suspect]
     Indication: PROPHYLAXIS OF NAUSEA AND VOMITING
     Dosage: SEE IMAGE
     Route: 048
     Dates: start: 20030903, end: 20030904
  3. DEXAMETHASONE [Suspect]
     Indication: PROPHYLAXIS OF NAUSEA AND VOMITING
     Dosage: PO
     Route: 048
     Dates: start: 20030902, end: 20030902
  4. CAP ONDANSETRON [Suspect]
     Indication: PROPHYLAXIS OF NAUSEA AND VOMITING
     Dosage: 8 MG/BID/PO
     Route: 048
     Dates: start: 20030902, end: 20030902
  5. CAP PLACEBO [Suspect]
     Indication: PROPHYLAXIS OF NAUSEA AND VOMITING
     Dosage: PO
     Route: 048
     Dates: start: 20030903, end: 20030904
  6. CYTOXAN [Suspect]
     Indication: BREAST CANCER
     Dates: start: 20030902, end: 20030902
  7. DOXORUBICIN HCL [Suspect]
     Indication: BREAST CANCER
     Dates: start: 20030902, end: 20030902
  8. FLUOROURACIL [Suspect]
     Indication: BREAST CANCER
     Dates: start: 20030902, end: 20030902
  9. CIPRO [Concomitant]
  10. COMPAZINE [Concomitant]
  11. PRILOSEC [Concomitant]
  12. VASOTEC [Concomitant]
  13. VIOXX [Concomitant]
  14. ZOFRAN [Concomitant]

REACTIONS (8)
  - ABDOMINAL PAIN UPPER [None]
  - DEHYDRATION [None]
  - DIARRHOEA [None]
  - DYSURIA [None]
  - ENTEROCOLITIS [None]
  - NAUSEA [None]
  - NEUTROPENIA [None]
  - VOMITING [None]
